FAERS Safety Report 6194496-5 (Version None)
Quarter: 2009Q2

REPORT INFORMATION
  Report Type: 
  Country: None (occurrence: None)
  Receive Date: 20090519
  Receipt Date: 20071113
  Transmission Date: 20091009
  Serious: Yes (Hospitalization)
  Sender: FDA-Public Use
  Company Number: US-ASTRAZENECA-2006UW22703

PATIENT
  Age: 18032 Day
  Sex: Female
  Weight: 86.2 kg

DRUGS (12)
  1. SEROQUEL [Suspect]
     Indication: SCHIZOPHRENIA
     Route: 048
     Dates: start: 19980101
  2. SEROQUEL [Suspect]
     Indication: DEPRESSION
     Route: 048
     Dates: start: 19980101
  3. SEROQUEL [Suspect]
     Indication: BIPOLAR DISORDER
     Route: 048
     Dates: start: 19980101
  4. CLOZARIL [Concomitant]
     Route: 065
  5. RISPERDAL [Concomitant]
     Route: 065
  6. ZYPREXA [Concomitant]
     Route: 065
  7. HALDOL [Concomitant]
     Route: 065
  8. C-MORPHINE SULPHATE [Concomitant]
     Route: 065
  9. INSULIN HUMAN REGULAR [Concomitant]
     Dosage: 10U/0.1 ML
     Route: 065
  10. LIDOCAINE [Concomitant]
     Route: 065
  11. DEPAKENE [Concomitant]
     Route: 065
  12. LITHIUM [Concomitant]
     Route: 065

REACTIONS (3)
  - DIABETES MELLITUS [None]
  - ILL-DEFINED DISORDER [None]
  - MULTIPLE INJURIES [None]
